FAERS Safety Report 4480941-X (Version None)
Quarter: 2004Q3

REPORT INFORMATION
  Report Type: 
  Country: None (occurrence: None)
  Receive Date: 20040923
  Receipt Date: 20040603
  Transmission Date: 20050211
  Serious: No
  Sender: FDA-Public Use
  Company Number: USA040568569

PATIENT
  Age: 71 Year
  Sex: Female

DRUGS (4)
  1. FORTEO [Suspect]
     Indication: OSTEOPOROSIS
     Dates: start: 20040505, end: 20040520
  2. CITRACAL (CALCIUM CITRATE) [Concomitant]
  3. AXID [Concomitant]
  4. LEVOTHYROXINE (LEVOTHYROXINE SODIUM) [Concomitant]

REACTIONS (4)
  - CONSTIPATION [None]
  - FATIGUE [None]
  - MUSCLE CRAMP [None]
  - MUSCULAR WEAKNESS [None]
